FAERS Safety Report 8491700-5 (Version None)
Quarter: 2012Q3

REPORT INFORMATION
  Report Type: 
  Country: None (occurrence: None)
  Receive Date: 20120706
  Receipt Date: 20120630
  Transmission Date: 20120928
  Serious: Yes (Disabling, Other)
  Sender: FDA-Public Use
  Company Number: DE-BAYER-2012-065540

PATIENT
  Sex: Female
  Weight: 67 kg

DRUGS (1)
  1. MIRENA [Suspect]
     Dosage: 20 ?G/D, CONT
     Route: 015
     Dates: start: 20070601, end: 20120618

REACTIONS (5)
  - WEIGHT INCREASED [None]
  - AUTOIMMUNE THYROIDITIS [None]
  - ABASIA [None]
  - HYPOTHYROIDISM [None]
  - INTERVERTEBRAL DISC PROTRUSION [None]
